FAERS Safety Report 6655091-4 (Version None)
Quarter: 2010Q1

REPORT INFORMATION
  Report Type: 
  Country: None (occurrence: None)
  Receive Date: 20100329
  Receipt Date: 20100315
  Transmission Date: 20100710
  Serious: Yes (Hospitalization)
  Sender: FDA-Public Use
  Company Number: JP-JNJFOC-20100305556

PATIENT
  Age: 72 Year
  Sex: Female

DRUGS (1)
  1. CRAVIT [Suspect]
     Indication: CYSTITIS
     Route: 065

REACTIONS (1)
  - STATUS EPILEPTICUS [None]
